FAERS Safety Report 12283727 (Version 1)
Quarter: 2016Q2

REPORT INFORMATION
  Report Type: Spontaneous
  Country: US (occurrence: US)
  Receive Date: 20160419
  Receipt Date: 20160419
  Transmission Date: 20160815
  Serious: No
  Sender: FDA-Public Use
  Company Number: US-BANPHARM-20154378

PATIENT
  Age: 85 Year
  Sex: Female
  Weight: 51.71 kg

DRUGS (3)
  1. CHICKEN FAT INJECTIONS [Concomitant]
  2. CORTISONE INJECTIONS [Concomitant]
  3. ALEVE [Suspect]
     Active Substance: NAPROXEN SODIUM
     Indication: ARTHRITIS
     Dosage: 1 DF, BID,
     Route: 048
     Dates: start: 2014

REACTIONS (2)
  - Pollakiuria [Not Recovered/Not Resolved]
  - Blood pressure increased [Not Recovered/Not Resolved]
